FAERS Safety Report 7658143-5 (Version None)
Quarter: 2011Q3

REPORT INFORMATION
  Report Type: 
  Country: None (occurrence: None)
  Receive Date: 20110802
  Receipt Date: 20110718
  Transmission Date: 20111222
  Serious: Yes (Other)
  Sender: FDA-Public Use
  Company Number: 2011MA008999

PATIENT
  Age: 49 Year
  Sex: Female

DRUGS (4)
  1. PROPARACAINE HCL [Suspect]
     Indication: ANAESTHESIA
     Dosage: 0.5 PT;1X;OPH
     Route: 047
  2. POVIDONE IODINE [Suspect]
     Dosage: 5 PT;1X;TOP
     Route: 061
  3. TRIAMCINOLONE ACETONIDE [Suspect]
     Indication: MACULAR OEDEMA
     Dosage: 4 MG;1X;IO
  4. TOBRAMYCIN [Suspect]
     Indication: POSTOPERATIVE CARE
     Dosage: ;OPH
     Route: 047

REACTIONS (5)
  - MACULAR OEDEMA [None]
  - OCULAR HYPERTENSION [None]
  - DISEASE RECURRENCE [None]
  - POST PROCEDURAL COMPLICATION [None]
  - VISUAL ACUITY REDUCED [None]
